FAERS Safety Report 6318172-0 (Version None)
Quarter: 2009Q3

REPORT INFORMATION
  Report Type: 
  Country: None (occurrence: None)
  Receive Date: 20090821
  Receipt Date: 20090811
  Transmission Date: 20100115
  Serious: Yes (Death, Hospitalization)
  Sender: FDA-Public Use
  Company Number: A0803137A

PATIENT
  Age: 83 Year
  Sex: Male

DRUGS (1)
  1. AVANDIA [Suspect]
     Dosage: 2MG TWICE PER DAY
     Route: 065
     Dates: end: 20060721

REACTIONS (2)
  - DEATH [None]
  - SILENT MYOCARDIAL INFARCTION [None]
